FAERS Safety Report 6335739-4 (Version None)
Quarter: 2009Q3

REPORT INFORMATION
  Report Type: 
  Country: None (occurrence: None)
  Receive Date: 20090831
  Receipt Date: 20090821
  Transmission Date: 20100115
  Serious: Yes (Hospitalization, Other)
  Sender: FDA-Public Use
  Company Number: US-ELI_LILLY_AND_COMPANY-US200908004799

PATIENT
  Sex: Female

DRUGS (4)
  1. FORTEO [Suspect]
     Indication: OSTEOPOROSIS
     Dosage: 20 UG, DAILY (1/D)
  2. OSCAL [Concomitant]
  3. NEPHRON [Concomitant]
  4. FOLIC ACID [Concomitant]

REACTIONS (3)
  - COMPRESSION FRACTURE [None]
  - FALL [None]
  - SKIN LACERATION [None]
